FAERS Safety Report 12272176 (Version 3)
Quarter: 2016Q2

REPORT INFORMATION
  Report Type: Report from Study
  Country: FR (occurrence: FR)
  Receive Date: 20160415
  Receipt Date: 20160613
  Transmission Date: 20160815
  Serious: Yes (Death, Hospitalization)
  Sender: FDA-Public Use
  Company Number: FR-CELGENEUS-FRA-2016040724

PATIENT
  Age: 67 Year
  Sex: Female
  Weight: 55 kg

DRUGS (3)
  1. REVLIMID [Suspect]
     Active Substance: LENALIDOMIDE
     Indication: PLASMA CELL MYELOMA
     Route: 048
     Dates: start: 20140403
  2. DEXAMETHASONE. [Suspect]
     Active Substance: DEXAMETHASONE
     Indication: PLASMA CELL MYELOMA
     Route: 048
     Dates: start: 20140403, end: 20150410
  3. POMALIDOMIDE [Suspect]
     Active Substance: POMALIDOMIDE
     Indication: PLASMA CELL MYELOMA
     Route: 048

REACTIONS (3)
  - Acute kidney injury [Not Recovered/Not Resolved]
  - General physical health deterioration [Fatal]
  - Plasma cell leukaemia [Fatal]

NARRATIVE: CASE EVENT DATE: 20160229
